FAERS Safety Report 15995671 (Version 2)
Quarter: 2019Q1

REPORT INFORMATION
  Report Type: Spontaneous
  Country: SE (occurrence: SE)
  Receive Date: 20190222
  Receipt Date: 20190307
  Transmission Date: 20190418
  Serious: Yes (Hospitalization)
  Sender: FDA-Public Use
  Company Number: SE-AMREGENT-20190291

PATIENT
  Age: 37 Year
  Sex: Female

DRUGS (6)
  1. NIFEREX [Concomitant]
     Dosage: 100MG (100MG, 1 IN 1 D)
     Route: 065
  2. CYKLOKAPRON [Concomitant]
     Active Substance: TRANEXAMIC ACID
     Dosage: 2-3 TABLETS 4 TIMES DAILY
     Route: 065
  3. SALAZOPYRIN EN [Concomitant]
     Active Substance: SULFASALAZINE
     Dosage: 2000MG (1 D)
     Route: 065
  4. FERINJECT [Suspect]
     Active Substance: FERRIC CARBOXYMALTOSE
     Dosage: 1000 MG
     Route: 042
     Dates: start: 20190117, end: 20190117
  5. MIRENA [Concomitant]
     Active Substance: LEVONORGESTREL
     Dosage: 20 MCG (20 MCG, 1 IN 24 HR)
     Route: 015
  6. DERMOVAT [Concomitant]
     Active Substance: CLOBETASOL
     Dosage: 2 IN 1 D
     Route: 065

REACTIONS (5)
  - Fatigue [Not Recovered/Not Resolved]
  - Nausea [Not Recovered/Not Resolved]
  - Infection [Not Recovered/Not Resolved]
  - Headache [Not Recovered/Not Resolved]
  - Pyrexia [Not Recovered/Not Resolved]

NARRATIVE: CASE EVENT DATE: 20190119
